FAERS Safety Report 6029631-2 (Version None)
Quarter: 2009Q1

REPORT INFORMATION
  Report Type: 
  Country: None (occurrence: None)
  Receive Date: 20090107
  Receipt Date: 20081230
  Transmission Date: 20090719
  Serious: Yes (Other)
  Sender: FDA-Public Use
  Company Number: US-BAYER-200840035NA

PATIENT
  Age: 39 Year
  Sex: Male

DRUGS (6)
  1. AVELOX [Suspect]
     Indication: COUGH
     Dosage: TOTAL DAILY DOSE: 400 MG  UNIT DOSE: 400 MG
     Dates: start: 20081201
  2. LISINOPRIL HYDROCHLORTHIAZID [Concomitant]
  3. PERCOCET [Concomitant]
  4. OXYCONTIN [Concomitant]
  5. FLEXERIL [Concomitant]
  6. NSAID'S [Concomitant]

REACTIONS (4)
  - ANAPHYLACTIC SHOCK [None]
  - DYSPNOEA [None]
  - PRURITUS [None]
  - RASH GENERALISED [None]
